FAERS Safety Report 21689000 (Version 2)
Quarter: 2023Q1

REPORT INFORMATION
  Report Type: Spontaneous
  Country: US (occurrence: US)
  Receive Date: 20221206
  Receipt Date: 20230102
  Transmission Date: 20230418
  Serious: Yes (Hospitalization)
  Sender: FDA-Public Use
  Company Number: US-Calliditas-2022CAL00562

PATIENT
  Age: 52 Year
  Sex: Male

DRUGS (1)
  1. TARPEYO [Suspect]
     Active Substance: BUDESONIDE
     Indication: Haematuria
     Dosage: 16 MG (4 MG CAPSULES) DAILY
     Route: 048
     Dates: start: 20221116

REACTIONS (4)
  - Product residue present [Not Recovered/Not Resolved]
  - Pancreatic disorder [Unknown]
  - Back pain [Unknown]
  - Condition aggravated [Unknown]
